FAERS Safety Report 16617528 (Version 1)
Quarter: 2019Q3

REPORT INFORMATION
  Report Type: Spontaneous
  Country: IN (occurrence: IN)
  Receive Date: 20190723
  Receipt Date: 20190723
  Transmission Date: 20191004
  Serious: Yes (Other)
  Sender: FDA-Public Use
  Company Number: IN-MYLANLABS-2019M1068096

PATIENT
  Sex: Female

DRUGS (4)
  1. ESTROGEN [Suspect]
     Active Substance: ESTROGENS
     Indication: HORMONE REPLACEMENT THERAPY
  2. MEDROXYPROGESTERONE [Suspect]
     Active Substance: MEDROXYPROGESTERONE
     Indication: MENOPAUSAL SYMPTOMS
     Route: 065
  3. MEDROXYPROGESTERONE [Suspect]
     Active Substance: MEDROXYPROGESTERONE
     Indication: HORMONE REPLACEMENT THERAPY
  4. ESTROGEN [Suspect]
     Active Substance: ESTROGENS
     Indication: MENOPAUSAL SYMPTOMS
     Route: 065

REACTIONS (2)
  - Disease progression [Unknown]
  - Keratoconus [Unknown]
